FAERS Safety Report 16908200 (Version 1)
Quarter: 2019Q4

REPORT INFORMATION
  Report Type: Spontaneous
  Country: US (occurrence: US)
  Receive Date: 20191010
  Receipt Date: 20191010
  Transmission Date: 20200122
  Serious: Yes (Other)
  Sender: FDA-Public Use
  Company Number: None

PATIENT
  Age: 54 Year
  Sex: Female

DRUGS (19)
  1. HYDROCODONE [Concomitant]
     Active Substance: HYDROCODONE
  2. PLAQUENIL [Concomitant]
     Active Substance: HYDROXYCHLOROQUINE SULFATE
  3. SMZ/TMP [Concomitant]
     Active Substance: SULFAMETHOXAZOLE\TRIMETHOPRIM
  4. MICROLET [Concomitant]
  5. AMLODIPINE [Concomitant]
     Active Substance: AMLODIPINE BESYLATE
  6. PREDNISONE. [Concomitant]
     Active Substance: PREDNISONE
  7. CYANOCOBALAM [Concomitant]
     Active Substance: CYANOCOBALAMIN
  8. MYCOPHENOLATE [Concomitant]
     Active Substance: MYCOPHENOLIC ACID
  9. QUETIAPINE. [Concomitant]
     Active Substance: QUETIAPINE
  10. GABAPENTIN. [Concomitant]
     Active Substance: GABAPENTIN
  11. METFORMIN [Concomitant]
     Active Substance: METFORMIN HYDROCHLORIDE
  12. MORPHINE [Concomitant]
     Active Substance: MORPHINE
  13. XANAX [Concomitant]
     Active Substance: ALPRAZOLAM
  14. ORENCIA [Suspect]
     Active Substance: ABATACEPT
     Indication: RHEUMATOID ARTHRITIS
     Dosage: ?          OTHER FREQUENCY:WEEKLY;?
     Route: 058
     Dates: start: 20181020
  15. ALPRAZOLAM. [Concomitant]
     Active Substance: ALPRAZOLAM
  16. DIVALPROEX [Concomitant]
     Active Substance: DIVALPROEX SODIUM
  17. PANTOPRAZOLE [Concomitant]
     Active Substance: PANTOPRAZOLE
  18. FLINSTONES VITAMINS [Concomitant]
  19. OLMESIA MEDOX [Concomitant]

REACTIONS (8)
  - Tinnitus [None]
  - Rheumatoid arthritis [None]
  - Vision blurred [None]
  - Migraine [None]
  - Treatment noncompliance [None]
  - Incorrect dose administered [None]
  - Concussion [None]
  - Memory impairment [None]

NARRATIVE: CASE EVENT DATE: 20190928
